FAERS Safety Report 24364816 (Version 1)
Quarter: 2024Q3

REPORT INFORMATION
  Report Type: Spontaneous
  Country: KR (occurrence: KR)
  Receive Date: 20240926
  Receipt Date: 20240926
  Transmission Date: 20241016
  Serious: Yes (Other)
  Sender: ACCORD
  Company Number: KR-Accord-447830

PATIENT
  Age: 60 Year
  Sex: Male

DRUGS (15)
  1. CISPLATIN [Suspect]
     Active Substance: CISPLATIN
     Indication: Lung adenocarcinoma
  2. PACLITAXEL [Suspect]
     Active Substance: PACLITAXEL
     Indication: Lung adenocarcinoma
  3. PEMETREXED [Suspect]
     Active Substance: PEMETREXED
     Indication: Lung adenocarcinoma
  4. CRIZOTINIB [Suspect]
     Active Substance: CRIZOTINIB
     Indication: Lung adenocarcinoma
  5. METHYLPREDNISOLONE [Suspect]
     Active Substance: METHYLPREDNISOLONE
     Indication: Chronic obstructive pulmonary disease
     Dosage: FOR 1 WEEK
  6. BECLOMETHASONE [Suspect]
     Active Substance: BECLOMETHASONE
     Indication: Chronic obstructive pulmonary disease
     Route: 055
  7. PREDNISOLONE [Suspect]
     Active Substance: PREDNISOLONE
     Indication: Radiation pneumonitis
     Dosage: STARTING AT 20 MG FOR 2 WEEKS, FOLLOWED BY 10 MG FOR AN ADDITIONAL 3 WEEKS
  8. CISPLATIN [Suspect]
     Active Substance: CISPLATIN
     Indication: Metastases to liver
  9. CISPLATIN [Suspect]
     Active Substance: CISPLATIN
     Indication: Metastases to adrenals
  10. PACLITAXEL [Suspect]
     Active Substance: PACLITAXEL
     Indication: Metastases to adrenals
  11. PACLITAXEL [Suspect]
     Active Substance: PACLITAXEL
     Indication: Metastases to liver
  12. PEMETREXED [Suspect]
     Active Substance: PEMETREXED
     Indication: Metastases to liver
  13. PEMETREXED [Suspect]
     Active Substance: PEMETREXED
     Indication: Metastases to adrenals
  14. CRIZOTINIB [Suspect]
     Active Substance: CRIZOTINIB
     Indication: Metastases to adrenals
  15. CRIZOTINIB [Suspect]
     Active Substance: CRIZOTINIB
     Indication: Metastases to liver

REACTIONS (2)
  - Tracheobronchitis viral [Recovering/Resolving]
  - Cytomegalovirus infection [Recovering/Resolving]
